FAERS Safety Report 6909071-1 (Version None)
Quarter: 2010Q3

REPORT INFORMATION
  Report Type: 
  Country: None (occurrence: None)
  Receive Date: 20100805
  Receipt Date: 20100730
  Transmission Date: 20110219
  Serious: Yes (Other)
  Sender: FDA-Public Use
  Company Number: FR-BRISTOL-MYERS SQUIBB COMPANY-15225881

PATIENT
  Sex: Male
  Weight: 4 kg

DRUGS (3)
  1. ABILIFY [Suspect]
     Dosage: 20MG
     Route: 064
     Dates: start: 20090304, end: 20091206
  2. AMITRIPTYLINE HCL [Suspect]
     Route: 064
     Dates: start: 20090304, end: 20091206
  3. LOXAPAC [Suspect]
     Route: 064
     Dates: start: 20090304, end: 20090611

REACTIONS (1)
  - CRYPTORCHISM [None]
